FAERS Safety Report 4541178-9 (Version None)
Quarter: 2004Q4

REPORT INFORMATION
  Report Type: 
  Country: None (occurrence: None)
  Receive Date: 20041227
  Receipt Date: 20041206
  Transmission Date: 20050328
  Serious: No
  Sender: FDA-Public Use
  Company Number: 9426

PATIENT
  Age: 7 Year
  Sex: Female

DRUGS (6)
  1. CARBOPLATIN [Suspect]
     Indication: RHABDOMYOSARCOMA
  2. ETOPOSIDE [Suspect]
     Indication: RHABDOMYOSARCOMA
  3. VINCRISTINE [Suspect]
     Indication: RHABDOMYOSARCOMA
  4. EPIRUBICIN [Suspect]
     Indication: RHABDOMYOSARCOMA
  5. DACTINOMYCIN [Suspect]
     Indication: RHABDOMYOSARCOMA
  6. IFOSFAMIDE [Suspect]
     Indication: RHABDOMYOSARCOMA

REACTIONS (9)
  - DIARRHOEA [None]
  - FEBRILE NEUTROPENIA [None]
  - GASTROINTESTINAL DISORDER [None]
  - GROWTH RETARDATION [None]
  - LYMPH NODE ABSCESS [None]
  - NEUTROPENIC SEPSIS [None]
  - PAIN IN EXTREMITY [None]
  - RASH MACULO-PAPULAR [None]
  - VASCULITIS [None]
